FAERS Safety Report 10616074 (Version 2)
Quarter: 2014Q4

REPORT INFORMATION
  Report Type: Spontaneous
  Country: DK (occurrence: DK)
  Receive Date: 20141201
  Receipt Date: 20141201
  Transmission Date: 20150529
  Serious: Yes (Death)
  Sender: FDA-Public Use
  Company Number: PHHY2014DK134378

PATIENT
  Age: 64 Year
  Sex: Female

DRUGS (5)
  1. KLACID UNO [Concomitant]
     Dosage: DOSIS:  1 TABLET DAGLIG I 7 DAGE
     Route: 065
     Dates: start: 20140918
  2. ULTIBRO BREEZHALER [Suspect]
     Active Substance: GLYCOPYRRONIUM\INDACATEROL
     Indication: CHRONIC OBSTRUCTIVE PULMONARY DISEASE
     Dosage: 1 DF, QD
     Route: 055
     Dates: start: 20140825
  3. ULTIBRO BREEZHALER [Suspect]
     Active Substance: GLYCOPYRRONIUM\INDACATEROL
     Dosage: STYRKE: 85 MCG+4MCG
     Route: 055
     Dates: start: 20140825
  4. KLACID UNO [Concomitant]
     Indication: PNEUMONIA
     Dosage: 1 DF, QD (DAILY FOR 07 DAYS)
     Route: 065
     Dates: start: 20140918
  5. VENTOLINE [Concomitant]
     Active Substance: ALBUTEROL
     Indication: PRODUCT USED FOR UNKNOWN INDICATION
     Dosage: 2 DF, UNK
     Route: 055

REACTIONS (1)
  - Death [Fatal]

NARRATIVE: CASE EVENT DATE: 20140919
